FAERS Safety Report 8234821-4 (Version None)
Quarter: 2012Q1

REPORT INFORMATION
  Report Type: 
  Country: None (occurrence: None)
  Receive Date: 20120322
  Receipt Date: 20120307
  Transmission Date: 20120608
  Serious: Yes (Life-Threatening)
  Sender: FDA-Public Use
  Company Number: 1219543

PATIENT
  Age: 24 Year
  Sex: Female
  Weight: 80 kg

DRUGS (7)
  1. CEFTRIAXONE [Suspect]
     Indication: PRODUCT USED FOR UNKNOWN INDICATION
     Dosage: 2.0 GRAM, ONCE, INTRAVENOUS (NOT OTHERWISE SPECIFIED)
     Route: 042
  2. NAPROXEN [Concomitant]
  3. ACETAMINOPHEN [Concomitant]
  4. CODEINE [Concomitant]
  5. DIMENHYDRINATE [Concomitant]
  6. HYDROMORPHONE HCL [Concomitant]
  7. DOCUSATE SODIUM [Concomitant]

REACTIONS (3)
  - TONGUE OEDEMA [None]
  - RESPIRATORY DISTRESS [None]
  - LIP OEDEMA [None]
